FAERS Safety Report 6855886-8 (Version None)
Quarter: 2010Q3

REPORT INFORMATION
  Report Type: 
  Country: None (occurrence: None)
  Receive Date: 20100719
  Receipt Date: 20100712
  Transmission Date: 20110219
  Serious: Yes (Other)
  Sender: FDA-Public Use
  Company Number: US-ABBOTT-09P-163-0614312-00

PATIENT
  Sex: Male
  Weight: 79.45 kg

DRUGS (19)
  1. LEUPROLIDE ACETATE [Suspect]
     Indication: PROSTATE CANCER
     Dates: start: 20051229
  2. LEUPROLIDE ACETATE [Suspect]
  3. NITROGLYCERIN [Concomitant]
     Indication: CARDIAC DISORDER
     Dosage: 0.2 MG/HR /PATCH
  4. ASPIRIN [Concomitant]
     Indication: CARDIAC DISORDER
     Route: 048
  5. ASPIRIN [Concomitant]
  6. METOPROLOL TARTRATE [Concomitant]
     Indication: CARDIAC DISORDER
     Route: 048
  7. COLESTIPOL HYDROCHLORIDE [Concomitant]
     Indication: BLOOD CHOLESTEROL INCREASED
     Route: 048
     Dates: start: 20090820
  8. COLESTIPOL HYDROCHLORIDE [Concomitant]
     Route: 048
  9. COLESTIPOL HYDROCHLORIDE [Concomitant]
  10. LECITHIN [Concomitant]
     Indication: PRODUCT USED FOR UNKNOWN INDICATION
  11. COQ-10 [Concomitant]
     Indication: PRODUCT USED FOR UNKNOWN INDICATION
     Route: 048
  12. LIPITOR [Concomitant]
     Indication: HYPERLIPIDAEMIA
  13. LIPITOR [Concomitant]
     Indication: ARTERIOSCLEROSIS
     Dates: start: 20080319
  14. LIPITOR [Concomitant]
     Dates: start: 20010901, end: 20011201
  15. PRAVASTATIN [Concomitant]
     Indication: PRODUCT USED FOR UNKNOWN INDICATION
     Dates: start: 20090129
  16. LACTIC ACID 16.7 % / SAL AC 16.7% / COLLODION [Concomitant]
     Indication: PRODUCT USED FOR UNKNOWN INDICATION
     Route: 061
  17. NIASPAN [Concomitant]
     Indication: BLOOD CHOLESTEROL
     Dates: start: 20100309
  18. CRESTOR [Concomitant]
     Indication: HYPERLIPIDAEMIA
     Dates: start: 20100401
  19. INFLUENZA VACCINE [Concomitant]
     Indication: PRODUCT USED FOR UNKNOWN INDICATION
     Dates: start: 20040609, end: 20040609

REACTIONS (23)
  - ABDOMINAL DISTENSION [None]
  - ACTINIC KERATOSIS [None]
  - ANGINA PECTORIS [None]
  - ARTHRITIS [None]
  - BACK PAIN [None]
  - CHEST DISCOMFORT [None]
  - DEAFNESS [None]
  - DYSPNOEA [None]
  - EYE IRRITATION [None]
  - FATIGUE [None]
  - HAEMANGIOMA [None]
  - HYPOAESTHESIA [None]
  - INFECTION [None]
  - LOCALISED OEDEMA [None]
  - MYALGIA [None]
  - NOCTURIA [None]
  - OEDEMA PERIPHERAL [None]
  - PAIN OF SKIN [None]
  - RASH ERYTHEMATOUS [None]
  - RASH PRURITIC [None]
  - ROSACEA [None]
  - SEBORRHOEA [None]
  - TREMOR [None]
